FAERS Safety Report 8442410 (Version 3)
Quarter: 2012Q4

REPORT INFORMATION
  Report Type: 
  Country: US (occurrence: US)
  Receive Date: 20120306
  Receipt Date: 20121231
  Transmission Date: 20130627
  Serious: Yes (Hospitalization)
  Sender: FDA-Public Use
  Company Number: US-BAYER-2012-020419

PATIENT
  Age: 26 Year
  Sex: Female
  Weight: 121.54 kg

DRUGS (19)
  1. YAZ [Suspect]
     Indication: CONTRACEPTION
     Dosage: UNK
     Dates: start: 200808, end: 200812
  2. YAZ [Suspect]
     Indication: MENSTRUAL CRAMPS
  3. OCELLA [Suspect]
     Indication: CONTRACEPTION
     Dosage: UNK
     Route: 048
     Dates: start: 200812, end: 200909
  4. OCELLA [Suspect]
     Indication: MENSTRUAL CRAMPS
  5. OCELLA [Suspect]
     Indication: MENSTRUATION IRREGULAR
  6. OXYBUTYNIN [Concomitant]
     Indication: MULTIPLE SCLEROSIS
     Dosage: 15 mg, UNK
     Route: 048
     Dates: start: 2007
  7. GABAPENTIN [Concomitant]
     Indication: MULTIPLE SCLEROSIS
     Dosage: 300 mg, UNK
     Route: 048
     Dates: start: 2007, end: 20120702
  8. VALTREX [Concomitant]
     Dosage: 500 mg, UNK
     Route: 048
  9. ARICEPT [Concomitant]
     Indication: MULTIPLE SCLEROSIS
     Dosage: 10 mg, UNK
     Route: 048
     Dates: start: 2007, end: 20120702
  10. IBUPROFEN [Concomitant]
     Dosage: 800 mg, UNK
     Route: 048
  11. ZYBAN [Concomitant]
     Indication: EX-TOBACCO USER
     Dosage: 150 mg, BID
     Route: 048
  12. PODOFILOX [Concomitant]
     Dosage: 0.5 %, BID
     Route: 061
  13. BETASERON [Concomitant]
     Dosage: 0.3 mg, UNK
  14. SANCTURA [Concomitant]
     Dosage: 20 mg, UNK
     Route: 048
  15. PROVIGIL [Concomitant]
     Dosage: 200 mg, UNK
     Route: 048
  16. REBIF [Concomitant]
  17. METHYLPHENIDATE [Concomitant]
     Dosage: 10 mg, BID
     Route: 048
  18. NUVIGIL [Concomitant]
     Dosage: 150 mg, UNK
     Route: 048
  19. BUPROPION [Concomitant]
     Dosage: 150 mg, UNK
     Dates: start: 20090718

REACTIONS (9)
  - Pulmonary embolism [Recovered/Resolved]
  - Anxiety [None]
  - Anhedonia [None]
  - Psychological trauma [None]
  - Pain in extremity [None]
  - Chest pain [Recovered/Resolved]
  - Speech disorder [None]
  - Asthenia [None]
  - Somnolence [None]
